FAERS Safety Report 8135684-8 (Version None)
Quarter: 2012Q1

REPORT INFORMATION
  Report Type: 
  Country: None (occurrence: None)
  Receive Date: 20120210
  Receipt Date: 20120126
  Transmission Date: 20120608
  Serious: Yes (Hospitalization)
  Sender: FDA-Public Use
  Company Number: 2012SGN00019

PATIENT
  Age: 37 Year
  Sex: Female

DRUGS (7)
  1. ADCETRIS [Suspect]
     Indication: HODGKIN'S DISEASE
     Dosage: 1.8 MG/KG
     Dates: start: 20110922, end: 20111104
  2. ACYCLOVIR [Concomitant]
  3. LASIX [Concomitant]
  4. METOPROLOL TARTRATE [Concomitant]
  5. MEGACE [Concomitant]
  6. ESCITALOPRAM [Concomitant]
  7. LORATADINE [Concomitant]

REACTIONS (8)
  - OESOPHAGEAL SPASM [None]
  - CHEST PAIN [None]
  - PLEURAL EFFUSION [None]
  - PAIN IN JAW [None]
  - PERICARDIAL EFFUSION [None]
  - PANIC ATTACK [None]
  - DYSPHAGIA [None]
  - CORONARY ARTERY DISEASE [None]
